FAERS Safety Report 4881874-7 (Version None)
Quarter: 2006Q1

REPORT INFORMATION
  Report Type: 
  Country: None (occurrence: None)
  Receive Date: 20060112
  Receipt Date: 20060112
  Transmission Date: 20060701
  Serious: Yes (Other)
  Sender: FDA-Public Use
  Company Number: None

PATIENT
  Age: 20 Year
  Sex: Female

DRUGS (6)
  1. TOPAMAX [Suspect]
  2. MAXALT [Concomitant]
  3. WELLBUTRIN [Concomitant]
  4. PAXIL [Concomitant]
  5. ORAL CONTRACEPTIVE [Concomitant]
  6. XENADRIN [Concomitant]

REACTIONS (4)
  - EYE PAIN [None]
  - PHOTOPHOBIA [None]
  - PRURITUS [None]
  - VISION BLURRED [None]
